FAERS Safety Report 19078466 (Version 1)
Quarter: 2021Q1

REPORT INFORMATION
  Report Type: Spontaneous
  Country: IT (occurrence: IT)
  Receive Date: 20210331
  Receipt Date: 20210331
  Transmission Date: 20210420
  Serious: Yes (Hospitalization, Other)
  Sender: FDA-Public Use
  Company Number: IT-AKCEA THERAPEUTICS, INC.-2021IS001205

PATIENT
  Age: 70 Year
  Sex: Male

DRUGS (10)
  1. DISSENTEN [Concomitant]
     Active Substance: LOPERAMIDE HYDROCHLORIDE
     Route: 065
  2. ISSD (INTEGRATED SYRINGE SAFETY DEVICE) [Suspect]
     Active Substance: DEVICE
  3. LYRICA [Concomitant]
     Active Substance: PREGABALIN
     Route: 065
  4. GUTRON [Concomitant]
     Active Substance: MIDODRINE HYDROCHLORIDE
     Route: 065
  5. ALVITYL /02362701/ [Concomitant]
     Route: 065
  6. CEBION /00008001/ [Concomitant]
     Route: 065
  7. VIT D [Concomitant]
     Active Substance: VITAMIN D NOS
     Route: 065
  8. NICETILE [Concomitant]
     Active Substance: LEVACECARNINE HYDROCHLORIDE
     Route: 065
  9. TEGSEDI [Suspect]
     Active Substance: INOTERSEN SODIUM
     Indication: HEREDITARY NEUROPATHIC AMYLOIDOSIS
     Route: 058
     Dates: start: 201509
  10. NOLPAZA [Concomitant]
     Active Substance: PANTOPRAZOLE SODIUM
     Route: 065

REACTIONS (1)
  - Respiratory failure [Not Recovered/Not Resolved]

NARRATIVE: CASE EVENT DATE: 20210321
